FAERS Safety Report 7054602-7 (Version None)
Quarter: 2010Q4

REPORT INFORMATION
  Report Type: 
  Country: None (occurrence: None)
  Receive Date: 20101015
  Receipt Date: 20100225
  Transmission Date: 20110411
  Serious: Yes (Hospitalization, Disabling, Other)
  Sender: FDA-Public Use
  Company Number: ALA_00682_2010

PATIENT
  Sex: Male

DRUGS (1)
  1. REGLAN [Suspect]
     Indication: NAUSEA
     Dosage: (10 MG ORAL)
     Route: 048
     Dates: start: 20010101, end: 20090101

REACTIONS (6)
  - ACTIVITIES OF DAILY LIVING IMPAIRED [None]
  - EMOTIONAL DISTRESS [None]
  - INCORRECT DRUG ADMINISTRATION DURATION [None]
  - MULTIPLE INJURIES [None]
  - QUALITY OF LIFE DECREASED [None]
  - TARDIVE DYSKINESIA [None]
